FAERS Safety Report 5903533-1 (Version None)
Quarter: 2008Q3

REPORT INFORMATION
  Report Type: 
  Country: None (occurrence: None)
  Receive Date: 20080930
  Receipt Date: 20080919
  Transmission Date: 20090109
  Serious: Yes (Disabling, Other)
  Sender: FDA-Public Use
  Company Number: US-PFIZER INC-2008067011

PATIENT
  Sex: Female
  Weight: 78.9 kg

DRUGS (11)
  1. LIPITOR [Suspect]
     Indication: HYPERCHOLESTEROLAEMIA
     Route: 048
     Dates: start: 20020101, end: 20070806
  2. PRAVASTATIN [Suspect]
     Dates: start: 20070101, end: 20080101
  3. AVANDARYL [Concomitant]
  4. HYDROCHLOROTHIAZIDE [Concomitant]
  5. AVAPRO [Concomitant]
  6. METFORMIN HCL [Concomitant]
  7. TOPROL-XL [Concomitant]
  8. FISH OIL [Concomitant]
  9. LECITHIN [Concomitant]
  10. VITAMINS [Concomitant]
  11. MELATONIN [Concomitant]

REACTIONS (11)
  - BLOOD CREATINE PHOSPHOKINASE INCREASED [None]
  - DISABILITY [None]
  - GAIT DISTURBANCE [None]
  - LIVER FUNCTION TEST ABNORMAL [None]
  - LOSS OF CONSCIOUSNESS [None]
  - MUSCLE ATROPHY [None]
  - MUSCLE INJURY [None]
  - MUSCULAR WEAKNESS [None]
  - MYOPATHY [None]
  - PAIN [None]
  - RHABDOMYOLYSIS [None]
